FAERS Safety Report 6699454-X (Version None)
Quarter: 2010Q2

REPORT INFORMATION
  Report Type: 
  Country: None (occurrence: None)
  Receive Date: 20100427
  Receipt Date: 20100415
  Transmission Date: 20101027
  Serious: Yes (Other)
  Sender: FDA-Public Use
  Company Number: ES-GENENTECH-300190

PATIENT
  Sex: Male
  Weight: 80 kg

DRUGS (2)
  1. MABTHERA [Suspect]
     Indication: THROMBOCYTOPENIA
     Dosage: 700 MG, UNK
     Route: 042
     Dates: start: 20080401, end: 20080401
  2. IBUPROFEN [Concomitant]
     Indication: PAIN
     Dosage: 600 UNK, UNK
     Route: 048
     Dates: start: 20080401, end: 20081201

REACTIONS (2)
  - BONE MARROW FAILURE [None]
  - THROMBOCYTOPENIA [None]
